FAERS Safety Report 9387168 (Version 1)
Quarter: 2013Q3

REPORT INFORMATION
  Report Type: Spontaneous
  Country: DK (occurrence: None)
  Receive Date: 20130702
  Receipt Date: 20130702
  Transmission Date: 20140515
  Serious: Yes (Other)
  Sender: FDA-Public Use
  Company Number: AUR-APL-2013-05380

PATIENT
  Sex: 0

DRUGS (6)
  1. RAMIPRIL [Suspect]
     Indication: HYPERTENSION
  2. BISOPROLOL FUMARATE [Suspect]
  3. CANDESARTAN CILEXETIL [Suspect]
  4. FUROSEMIDE (FUROSEMIDE) [Suspect]
  5. LERCANIDIPINE [Suspect]
  6. SPIRONOLACTONE [Suspect]

REACTIONS (2)
  - Hypertension [None]
  - Peripheral nerve destruction [None]
